FAERS Safety Report 8494063-4 (Version None)
Quarter: 2012Q3

REPORT INFORMATION
  Report Type: 
  Country: None (occurrence: None)
  Receive Date: 20120709
  Receipt Date: 20120625
  Transmission Date: 20120928
  Serious: Yes (Other)
  Sender: FDA-Public Use
  Company Number: US-RB-041677-12

PATIENT
  Age: 31 Year
  Sex: Male

DRUGS (1)
  1. DELSYM [Suspect]
     Indication: DRUG ABUSE
     Dosage: CONSUMED 11OZ OF THE PRODUCT
     Route: 048
     Dates: start: 20120623

REACTIONS (5)
  - DRUG ABUSE [None]
  - INSOMNIA [None]
  - HYPOAESTHESIA [None]
  - OVERDOSE [None]
  - DYSURIA [None]
